FAERS Safety Report 6746777-1 (Version None)
Quarter: 2010Q2

REPORT INFORMATION
  Report Type: 
  Country: None (occurrence: None)
  Receive Date: 20100528
  Receipt Date: 20091009
  Transmission Date: 20101027
  Serious: No
  Sender: FDA-Public Use
  Company Number: A0811062A

PATIENT
  Age: 75 Year
  Sex: Male

DRUGS (6)
  1. VENTOLIN [Suspect]
     Indication: ASTHMA
     Dosage: 2PUFF FOUR TIMES PER DAY
     Route: 055
     Dates: start: 20091008
  2. HYTRIN [Concomitant]
  3. AVODART [Concomitant]
  4. LISINOPRIL [Concomitant]
  5. SIMVASTATIN [Concomitant]
  6. PREDNISONE TAB [Concomitant]

REACTIONS (4)
  - ANXIETY [None]
  - APHONIA [None]
  - HYPERTENSION [None]
  - TREMOR [None]
